FAERS Safety Report 8090761-5 (Version None)
Quarter: 2012Q1

REPORT INFORMATION
  Report Type: 
  Country: None (occurrence: None)
  Receive Date: 20120131
  Receipt Date: 20120123
  Transmission Date: 20120608
  Serious: Yes (Hospitalization)
  Sender: FDA-Public Use
  Company Number: US-BAYER-200929524NA

PATIENT
  Age: 45 Year
  Sex: Female
  Weight: 72.273 kg

DRUGS (16)
  1. MOTRIN [Concomitant]
     Route: 065
     Dates: start: 20070101, end: 20100101
  2. ESCITALOPRAM [Concomitant]
  3. ZITHROMAX [Concomitant]
     Dosage: UNK
     Dates: start: 20080409
  4. ROBITUSSIN AC [CODEINE PHOSPHATE,GUAIFENESIN] [Concomitant]
     Dosage: UNK
     Dates: start: 20080409
  5. YAZ [Suspect]
     Indication: PRODUCT USED FOR UNKNOWN INDICATION
     Route: 048
     Dates: start: 20070701, end: 20080501
  6. DOPAMINE HYDROCHLORIDE [Concomitant]
     Dosage: UNK
     Dates: start: 20080501
  7. MUCINEX [Concomitant]
     Dosage: UNK
     Dates: start: 20080409
  8. LIPITOR [Concomitant]
     Route: 065
     Dates: start: 19990101
  9. SYNTHROID [Concomitant]
  10. YASMIN [Suspect]
     Indication: CONTRACEPTION
     Dosage: ??-APR-2007 TO JUN-2007
     Route: 048
     Dates: start: 20070401, end: 20070601
  11. LEVOTHYROXINE SODIUM [Concomitant]
     Route: 065
     Dates: start: 19990101
  12. VICODIN [Concomitant]
  13. VITAMIN TAB [Concomitant]
     Dosage: UNK
     Dates: start: 20080409
  14. GABAPENTIN [Concomitant]
     Dosage: UNK
     Dates: start: 20080923
  15. BACLOFEN [Concomitant]
     Dosage: UNK
     Dates: start: 20080101
  16. ATORVASTATIN [Concomitant]

REACTIONS (5)
  - EMOTIONAL DISTRESS [None]
  - ISCHAEMIC STROKE [None]
  - MOTOR DYSFUNCTION [None]
  - MUSCULAR WEAKNESS [None]
  - PAIN [None]
